FAERS Safety Report 7737321-0 (Version None)
Quarter: 2011Q3

REPORT INFORMATION
  Report Type: 
  Country: None (occurrence: None)
  Receive Date: 20110908
  Receipt Date: 20110825
  Transmission Date: 20111222
  Serious: Yes (Life-Threatening, Hospitalization, Other)
  Sender: FDA-Public Use
  Company Number: JP-CELGENEUS-087-21880-10101331

PATIENT
  Sex: Male
  Weight: 73.4 kg

DRUGS (11)
  1. FAMOTIDINE [Concomitant]
     Indication: PROPHYLAXIS
     Dosage: 40 MILLIGRAM
     Route: 048
     Dates: start: 20100726
  2. URALYT [Concomitant]
     Indication: MULTIPLE MYELOMA
     Dosage: 6 TABLET
     Route: 048
     Dates: start: 20100726
  3. DIFLUCAN [Concomitant]
     Indication: PROPHYLAXIS
     Dosage: 100 MILLIGRAM
     Route: 048
     Dates: start: 20100726, end: 20100815
  4. DEXAMETHASONE [Suspect]
     Indication: MULTIPLE MYELOMA
     Dosage: 20 MILLIGRAM
     Route: 041
     Dates: start: 20100726, end: 20100729
  5. ALLOPURINOL [Concomitant]
     Indication: MULTIPLE MYELOMA
     Dosage: 300 MILLIGRAM
     Route: 048
     Dates: start: 20100726
  6. PERIACTIN [Concomitant]
     Indication: MULTIPLE MYELOMA
     Dosage: 8 MILLIGRAM
     Route: 048
     Dates: start: 20100726
  7. ZOSYN [Concomitant]
     Indication: SEPSIS
     Dosage: 4.5 GRAM
     Route: 041
     Dates: start: 20100815, end: 20100828
  8. REVLIMID [Suspect]
     Indication: MULTIPLE MYELOMA
     Dosage: 10 MILLIGRAM
     Route: 048
     Dates: start: 20100726, end: 20100801
  9. ADONA [Concomitant]
     Indication: MULTIPLE MYELOMA
     Dosage: 90 MILLIGRAM
     Route: 048
     Dates: start: 20100726
  10. REVLIMID [Suspect]
     Dosage: 10 MILLIGRAM
     Route: 048
     Dates: start: 20100810, end: 20100814
  11. DEXAMETHASONE [Suspect]
     Indication: MULTIPLE MYELOMA
     Dosage: 20 MILLIGRAM
     Route: 048
     Dates: start: 20100810, end: 20100810

REACTIONS (4)
  - RENAL DISORDER [None]
  - ANAEMIA [None]
  - SPINAL COMPRESSION FRACTURE [None]
  - STAPHYLOCOCCAL SEPSIS [None]
